FAERS Safety Report 19802694 (Version 2)
Quarter: 2022Q3

REPORT INFORMATION
  Report Type: Spontaneous
  Country: CA (occurrence: CA)
  Receive Date: 20210908
  Receipt Date: 20220721
  Transmission Date: 20221026
  Serious: Yes (Hospitalization, Other)
  Sender: FDA-Public Use
  Company Number: CA-LUPIN PHARMACEUTICALS INC.-2021-16659

PATIENT
  Age: 84 Year
  Sex: Male
  Weight: 83 kg

DRUGS (29)
  1. RAMIPRIL [Suspect]
     Active Substance: RAMIPRIL
     Indication: Product used for unknown indication
     Dosage: UNK
     Route: 065
  2. CIPROFLOXACIN [Suspect]
     Active Substance: CIPROFLOXACIN
     Indication: Diabetic foot
     Dosage: 500 MILLIGRAM, BID
     Route: 048
  3. CIPROFLOXACIN [Suspect]
     Active Substance: CIPROFLOXACIN
     Indication: Staphylococcal infection
  4. CIPROFLOXACIN [Suspect]
     Active Substance: CIPROFLOXACIN
     Indication: Beta haemolytic streptococcal infection
  5. CIPROFLOXACIN [Suspect]
     Active Substance: CIPROFLOXACIN
     Indication: Pseudomonas infection
  6. ERTAPENEM [Suspect]
     Active Substance: ERTAPENEM
     Indication: Diabetic foot
     Dosage: 1 GRAM, QD
     Route: 042
  7. ERTAPENEM [Suspect]
     Active Substance: ERTAPENEM
     Indication: Staphylococcal infection
  8. ERTAPENEM [Suspect]
     Active Substance: ERTAPENEM
     Indication: Beta haemolytic streptococcal infection
  9. ERTAPENEM [Suspect]
     Active Substance: ERTAPENEM
     Indication: Pseudomonas infection
  10. FOSFOMYCIN [Suspect]
     Active Substance: FOSFOMYCIN
     Indication: Diabetic foot infection
     Dosage: 6 GRAM, TID
     Route: 042
  11. FOSFOMYCIN [Suspect]
     Active Substance: FOSFOMYCIN
     Indication: Pseudomonas infection
  12. CEFTOLOZANE SULFATE\TAZOBACTAM SODIUM [Suspect]
     Active Substance: CEFTOLOZANE SULFATE\TAZOBACTAM SODIUM
     Indication: Diabetic foot infection
     Dosage: 1.5 GRAM, TID
     Route: 042
  13. CEFTOLOZANE SULFATE\TAZOBACTAM SODIUM [Suspect]
     Active Substance: CEFTOLOZANE SULFATE\TAZOBACTAM SODIUM
     Indication: Pseudomonas infection
  14. CLOXACILLIN [Suspect]
     Active Substance: CLOXACILLIN
     Indication: Diabetic foot
     Dosage: UNK
     Route: 048
  15. CLOXACILLIN [Suspect]
     Active Substance: CLOXACILLIN
     Indication: Staphylococcal infection
  16. CLOXACILLIN [Suspect]
     Active Substance: CLOXACILLIN
     Indication: Beta haemolytic streptococcal infection
  17. CLOXACILLIN [Suspect]
     Active Substance: CLOXACILLIN
     Indication: Pseudomonas infection
  18. GENTAMICIN [Suspect]
     Active Substance: GENTAMICIN
     Indication: Diabetic foot infection
     Dosage: 160 MILLIGRAM, QD
     Route: 042
  19. GENTAMICIN [Suspect]
     Active Substance: GENTAMICIN
     Indication: Pseudomonas infection
  20. MEROPENEM [Concomitant]
     Active Substance: MEROPENEM
     Indication: Diabetic foot infection
     Dosage: 1 GRAM, TID
     Route: 042
  21. MEROPENEM [Concomitant]
     Active Substance: MEROPENEM
     Indication: Pseudomonas infection
  22. CEFTRIAXONE [Concomitant]
     Active Substance: CEFTRIAXONE
     Indication: Diabetic foot infection
     Dosage: 2 GRAM, QD
     Route: 042
  23. CEFTRIAXONE [Concomitant]
     Active Substance: CEFTRIAXONE
     Indication: Evidence based treatment
  24. CEFTRIAXONE [Concomitant]
     Active Substance: CEFTRIAXONE
     Indication: Antibiotic therapy
  25. ONDANSETRON [Concomitant]
     Active Substance: ONDANSETRON
     Indication: Nausea
     Dosage: UNK
     Route: 042
  26. METRONIDAZOLE [Concomitant]
     Active Substance: METRONIDAZOLE
     Indication: Diabetic foot infection
     Dosage: 500 MILLIGRAM, BID
     Route: 048
  27. METRONIDAZOLE [Concomitant]
     Active Substance: METRONIDAZOLE
     Indication: Evidence based treatment
  28. METRONIDAZOLE [Concomitant]
     Active Substance: METRONIDAZOLE
     Indication: Antibiotic therapy
  29. CEFAZOLIN [Concomitant]
     Active Substance: CEFAZOLIN
     Indication: Antibiotic prophylaxis
     Dosage: 2000 MILLIGRAM, TID
     Route: 065

REACTIONS (2)
  - Drug ineffective [Unknown]
  - Acute kidney injury [Recovered/Resolved]
